FAERS Safety Report 6480061-9 (Version None)
Quarter: 2009Q4

REPORT INFORMATION
  Report Type: 
  Country: None (occurrence: None)
  Receive Date: 20091208
  Receipt Date: 20090302
  Transmission Date: 20100525
  Serious: No
  Sender: FDA-Public Use
  Company Number: US-AMGEN-KDL336477

PATIENT
  Sex: Female

DRUGS (3)
  1. ENBREL [Suspect]
     Indication: RHEUMATOID ARTHRITIS
     Route: 058
     Dates: start: 20080710
  2. PLAQUENIL [Concomitant]
     Route: 048
     Dates: start: 20010101
  3. METHOTREXATE [Concomitant]
     Route: 048
     Dates: start: 20010101

REACTIONS (2)
  - MUSCULOSKELETAL PAIN [None]
  - MYALGIA [None]
